FAERS Safety Report 19899462 (Version 1)
Quarter: 2021Q3

REPORT INFORMATION
  Report Type: Spontaneous
  Country: CA (occurrence: CA)
  Receive Date: 20210930
  Receipt Date: 20210930
  Transmission Date: 20211014
  Serious: Yes (Other)
  Sender: FDA-Public Use
  Company Number: CA-CELLTRION INC.-2020CA023548

PATIENT

DRUGS (20)
  1. INFLECTRA [Suspect]
     Active Substance: INFLIXIMAB-DYYB
     Dosage: 300 MG, (AT 0, 2, 6 WEEKS, THEN EVERY 8 WEEKS)
     Route: 042
     Dates: start: 20201119
  2. INFLECTRA [Suspect]
     Active Substance: INFLIXIMAB-DYYB
     Dosage: 300 MG EVERY 4 WEEKS
     Route: 042
     Dates: start: 20210531
  3. INFLECTRA [Suspect]
     Active Substance: INFLIXIMAB-DYYB
     Dosage: 300 MG EVERY 4 WEEKS
     Route: 042
     Dates: start: 20210628
  4. INFLECTRA [Suspect]
     Active Substance: INFLIXIMAB-DYYB
     Dosage: 300 MG EVERY 4 WEEKS
     Route: 042
     Dates: start: 20210726
  5. INFLECTRA [Suspect]
     Active Substance: INFLIXIMAB-DYYB
     Dosage: 300 MG, EVERY 6 WEEKS (100 MG/VIAL)
     Route: 042
     Dates: start: 20201230, end: 20201230
  6. INFLECTRA [Suspect]
     Active Substance: INFLIXIMAB-DYYB
     Dosage: 300 MG EVERY 4 WEEKS
     Route: 042
     Dates: start: 20210308
  7. INFLECTRA [Suspect]
     Active Substance: INFLIXIMAB-DYYB
     Dosage: 300 MG EVERY 4 WEEKS
     Route: 042
     Dates: start: 20210824
  8. INFLECTRA [Suspect]
     Active Substance: INFLIXIMAB-DYYB
     Indication: RHEUMATOID ARTHRITIS
     Dosage: 300 MG, (AT 0, 2, 6 WEEKS, THEN EVERY 8 WEEKS)
     Route: 042
     Dates: start: 20200618, end: 20201119
  9. INFLECTRA [Suspect]
     Active Substance: INFLIXIMAB-DYYB
     Dosage: 600 MG (ONE DOSE)
     Route: 042
     Dates: start: 20210208
  10. INFLECTRA [Suspect]
     Active Substance: INFLIXIMAB-DYYB
     Dosage: 300 MG EVERY 4 WEEKS
     Route: 042
     Dates: start: 20210503
  11. VITAMIN D [VITAMIN D NOS] [Concomitant]
     Active Substance: VITAMIN D NOS
     Dosage: 1 DF (UNK DOSE)
     Route: 065
  12. INFLECTRA [Suspect]
     Active Substance: INFLIXIMAB-DYYB
     Indication: CROHN^S DISEASE
     Dosage: 300 MG, (AT 0, 2, 6 WEEKS, THEN EVERY 8 WEEKS)
     Route: 042
  13. INFLECTRA [Suspect]
     Active Substance: INFLIXIMAB-DYYB
     Dosage: 600 MG (ONE DOSE)
     Route: 042
     Dates: start: 20210208
  14. INFLECTRA [Suspect]
     Active Substance: INFLIXIMAB-DYYB
     Dosage: 300 MG EVERY 4 WEEKS
     Route: 042
     Dates: start: 20210920
  15. INFLECTRA [Suspect]
     Active Substance: INFLIXIMAB-DYYB
     Dosage: 600 MG (ONE DOSE)
     Route: 042
     Dates: start: 20210208, end: 20210208
  16. ARAVA [Concomitant]
     Active Substance: LEFLUNOMIDE
     Dosage: 1 DF (UNK DOSE)
     Route: 065
  17. NEXIUM I.V. [Concomitant]
     Active Substance: ESOMEPRAZOLE SODIUM
     Dosage: 1 DF (UNK DOSE)
     Route: 065
  18. OXAZEPAM. [Concomitant]
     Active Substance: OXAZEPAM
     Dosage: 1 DF (UNK DOSE)
     Route: 065
  19. INFLECTRA [Suspect]
     Active Substance: INFLIXIMAB-DYYB
     Dosage: 300 MG, (AT 0, 2, 6 WEEKS, THEN EVERY 8 WEEKS)
     Route: 042
     Dates: start: 20200702
  20. INFLECTRA [Suspect]
     Active Substance: INFLIXIMAB-DYYB
     Dosage: 300 MG, (AT 0, 2, 6 WEEKS, THEN EVERY 8 WEEKS)
     Route: 042
     Dates: start: 20200923

REACTIONS (15)
  - Heart rate decreased [Unknown]
  - Diarrhoea [Recovering/Resolving]
  - Dry skin [Unknown]
  - Decreased appetite [Unknown]
  - Blood pressure fluctuation [Unknown]
  - Inappropriate schedule of product administration [Unknown]
  - Condition aggravated [Not Recovered/Not Resolved]
  - Inflammation [Unknown]
  - Weight decreased [Unknown]
  - Drug level decreased [Unknown]
  - Blood pressure systolic increased [Unknown]
  - Skin atrophy [Unknown]
  - Skin laceration [Unknown]
  - Mouth ulceration [Recovered/Resolved]
  - Off label use [Unknown]

NARRATIVE: CASE EVENT DATE: 20200618
